FAERS Safety Report 25063708 (Version 1)
Quarter: 2025Q1

REPORT INFORMATION
  Report Type: Report from Study
  Country: JP (occurrence: JP)
  Receive Date: 20250311
  Receipt Date: 20250311
  Transmission Date: 20250409
  Serious: Yes (Other)
  Sender: ELI LILLY AND COMPANY
  Company Number: JP-ELI_LILLY_AND_COMPANY-JP202503001585

PATIENT
  Age: 66 Year

DRUGS (1)
  1. VERZENIO [Suspect]
     Active Substance: ABEMACICLIB
     Indication: Product used for unknown indication
     Route: 048
     Dates: start: 20221221, end: 20241225

REACTIONS (15)
  - Anaemia [Unknown]
  - Cardiac disorder [Unknown]
  - Malaise [Unknown]
  - Hair growth abnormal [Unknown]
  - Dizziness postural [Unknown]
  - Weight decreased [Unknown]
  - Palpitations [Unknown]
  - Dyspnoea [Unknown]
  - Abdominal discomfort [Unknown]
  - Hypophagia [Recovered/Resolved]
  - Nausea [Unknown]
  - Decreased appetite [Unknown]
  - Diarrhoea [Unknown]
  - Fatigue [Unknown]
  - Blood creatinine increased [Unknown]

NARRATIVE: CASE EVENT DATE: 20230801
